FAERS Safety Report 7131501-3 (Version None)
Quarter: 2010Q4

REPORT INFORMATION
  Report Type: 
  Country: None (occurrence: None)
  Receive Date: 20101201
  Receipt Date: 20101124
  Transmission Date: 20110411
  Serious: Yes (Other)
  Sender: FDA-Public Use
  Company Number: AU-AMGEN-KDL439997

PATIENT

DRUGS (2)
  1. NEUPOGEN [Suspect]
     Indication: BLOOD STEM CELL HARVEST
     Dosage: 780 A?G, QD
     Route: 058
     Dates: start: 20100909, end: 20100912
  2. SOMAC [Concomitant]
     Dosage: UNK UNK, QD

REACTIONS (3)
  - HEADACHE [None]
  - NIGHTMARE [None]
  - OCULAR HYPERAEMIA [None]
